FAERS Safety Report 4626785-7 (Version None)
Quarter: 2005Q2

REPORT INFORMATION
  Report Type: 
  Country: None (occurrence: None)
  Receive Date: 20050401
  Receipt Date: 20050401
  Transmission Date: 20051028
  Serious: Yes (Other)
  Sender: FDA-Public Use
  Company Number: None

PATIENT
  Sex: Male
  Weight: 64.8644 kg

DRUGS (2)
  1. DOXIL [Suspect]
     Indication: RENAL CANCER METASTATIC
     Dosage: 70 MG EVERY 4 WKS INTRAVENOUS
     Route: 042
     Dates: start: 20050216, end: 20050330
  2. TOPOTECAN 1.5 MG/M2 GLAXOSMITHKLINE [Suspect]
     Indication: RENAL CANCER METASTATIC
     Dosage: 2.6 MG WEEKLYX3 INTRAVENOUS
     Route: 042
     Dates: start: 20050216, end: 20050330

REACTIONS (2)
  - NEUTROPHIL COUNT DECREASED [None]
  - PLATELET COUNT DECREASED [None]
